FAERS Safety Report 10439349 (Version 2)
Quarter: 2014Q3

REPORT INFORMATION
  Report Type: Spontaneous
  Country: US (occurrence: US)
  Receive Date: 20140908
  Receipt Date: 20140908
  Transmission Date: 20150326
  Serious: No
  Sender: FDA-Public Use
  Company Number: US-BRISTOL-MYERS SQUIBB COMPANY-19941780

PATIENT
  Age: 60 Year
  Sex: Female

DRUGS (23)
  1. BACLOFEN. [Concomitant]
     Active Substance: BACLOFEN
     Indication: MYALGIA
     Dosage: 1DF-1 TABLET
     Route: 048
  2. ZYRTEC [Concomitant]
     Active Substance: CETIRIZINE HYDROCHLORIDE
     Dosage: TAB
     Route: 048
  3. FLONASE [Concomitant]
     Active Substance: FLUTICASONE PROPIONATE
     Route: 055
  4. ABILIFY [Suspect]
     Active Substance: ARIPIPRAZOLE
     Indication: MAJOR DEPRESSION
     Dosage: DOSE INCREASED TO 5 MG
     Route: 048
     Dates: start: 20131010
  5. VITAMIN C [Concomitant]
     Active Substance: ASCORBIC ACID
     Dosage: TABLET,
     Route: 048
  6. PANTOPRAZOLE [Concomitant]
     Active Substance: PANTOPRAZOLE SODIUM
     Route: 048
  7. PRAVASTATIN SODIUM. [Concomitant]
     Active Substance: PRAVASTATIN SODIUM
     Dosage: TABLET, AT BEDTIME
     Route: 048
  8. MORPHINE [Concomitant]
     Active Substance: MORPHINE
     Dosage: MORPHINE 15 MG/12 HR TABLET, EXTENDED RELEASE?1DF-1 TAB
     Route: 048
  9. HYDROCHLOROTHIAZIDE. [Concomitant]
     Active Substance: HYDROCHLOROTHIAZIDE
     Dosage: HYDROCHIOROTHIAZIDE 50 TABLET,?1DF- 1TAB
     Route: 048
  10. NEURONTIN [Concomitant]
     Active Substance: GABAPENTIN
     Indication: PAIN
     Dosage: NEURONTIN 600 TABLET, 1DF-1 TAB ,AT BEDTIME
     Route: 048
  11. MIRALAX [Concomitant]
     Active Substance: POLYETHYLENE GLYCOL 3350
     Route: 048
  12. ALBUTEROL. [Concomitant]
     Active Substance: ALBUTEROL
     Dosage: ALBUTEROL CFC FREE 90 MCG/INH AEROSOL WITH ADAPTER?1DF- 2 PUFFS
     Route: 055
  13. VICODIN [Concomitant]
     Active Substance: ACETAMINOPHEN\HYDROCODONE BITARTRATE
     Dosage: 5/500 500 MG-S MG TABLET, 51A: 1 TAB(S) ORALLY ONCE A DAY IF NEEDED
     Route: 048
  14. CARMOL [Concomitant]
     Dosage: CARMOI-40 40% LOTION,1DF- 1 APPLICATION
     Route: 061
  15. LISINOPRIL. [Concomitant]
     Active Substance: LISINOPRIL
     Indication: BLOOD PRESSURE
     Dosage: LISINOPRIL 5 TABLET, 1DF-ONE TABLET
     Route: 048
  16. VIIBRYD [Concomitant]
     Active Substance: VILAZODONE HYDROCHLORIDE
     Dosage: TAB
     Route: 048
  17. OSCAL [Concomitant]
     Active Substance: CALCIUM CARBONATE
     Dosage: TAB
     Route: 048
  18. VESICARE [Concomitant]
     Active Substance: SOLIFENACIN SUCCINATE
     Dosage: TAB
     Route: 048
  19. VITAMIN D [Concomitant]
     Active Substance: CHOLECALCIFEROL
     Dosage: 1DF- 1CAP
     Route: 048
  20. MS CONTIN [Concomitant]
     Active Substance: MORPHINE SULFATE
     Indication: PAIN
     Dosage: TABLET, EXTENDED RELEASE
     Route: 048
  21. ASA [Concomitant]
     Active Substance: ASPIRIN
     Dosage: TAB
     Route: 048
  22. MULTIPLE VITAMINS [Concomitant]
     Active Substance: VITAMINS
     Dosage: 1DF- 1TAB
     Route: 048
  23. KETOCONAZOLE CREAM [Concomitant]
     Active Substance: KETOCONAZOLE
     Dosage: 2%CREAM,1DF-1 APPLICATION
     Route: 061

REACTIONS (1)
  - Peripheral swelling [Recovered/Resolved]

NARRATIVE: CASE EVENT DATE: 20131223
